FAERS Safety Report 4500274-2 (Version None)
Quarter: 2004Q4

REPORT INFORMATION
  Report Type: 
  Country: None (occurrence: None)
  Receive Date: 20041112
  Receipt Date: 20030507
  Transmission Date: 20050328
  Serious: Yes (Hospitalization)
  Sender: FDA-Public Use
  Company Number: US-MERCK-0305USA01301

PATIENT
  Age: 49 Year
  Sex: Male

DRUGS (7)
  1. ZOCOR [Suspect]
     Indication: PROPHYLAXIS
     Route: 048
     Dates: start: 19980701, end: 19980901
  2. ZOCOR [Suspect]
     Route: 048
     Dates: start: 19990301, end: 20010301
  3. ZOCOR [Suspect]
     Route: 048
     Dates: end: 20020601
  4. PRILOSEC [Concomitant]
     Route: 065
  5. ATENOLOL [Concomitant]
     Route: 065
  6. ASPIRIN [Concomitant]
     Route: 065
  7. VICODIN ES [Concomitant]
     Route: 065

REACTIONS (5)
  - ARTHRALGIA [None]
  - MUSCULAR WEAKNESS [None]
  - MUSCULOSKELETAL STIFFNESS [None]
  - MYOSITIS [None]
  - RHABDOMYOLYSIS [None]
